FAERS Safety Report 16573108 (Version 2)
Quarter: 2019Q3

REPORT INFORMATION
  Report Type: Spontaneous
  Country: DE (occurrence: DE)
  Receive Date: 20190715
  Receipt Date: 20190717
  Transmission Date: 20191004
  Serious: Yes (Hospitalization)
  Sender: FDA-Public Use
  Company Number: DE-SA-2019SA185454

PATIENT
  Age: 86 Year
  Sex: Male
  Weight: 67 kg

DRUGS (8)
  1. APIXABAN [Concomitant]
     Active Substance: APIXABAN
     Dosage: 2.5 MG, UNK
     Route: 048
  2. PANTOPRAZOLE [PANTOPRAZOLE SODIUM SESQUIHYDRATE] [Concomitant]
     Dosage: 40 MG, UNK
     Route: 048
  3. LISINOPRIL. [Concomitant]
     Active Substance: LISINOPRIL
     Dosage: 10 MG, UNK
     Route: 048
  4. TAMSULOSIN HYDROCHLORIDE. [Suspect]
     Active Substance: TAMSULOSIN HYDROCHLORIDE
     Indication: PRODUCT USED FOR UNKNOWN INDICATION
     Dosage: 0.4 MG, QD
     Route: 048
  5. RAMIPRIL. [Concomitant]
     Active Substance: RAMIPRIL
     Dosage: 5 MG, UNK
     Route: 048
  6. FUROSEMID [FUROSEMIDE SODIUM] [Concomitant]
     Dosage: 40 MG, UNK
     Route: 048
  7. NALOXONE HYDROCHLORIDE/TILIDINE HYDROCHLORIDE [Suspect]
     Active Substance: NALOXONE HYDROCHLORIDE\TILIDINE HYDROCHLORIDE
     Indication: PRODUCT USED FOR UNKNOWN INDICATION
     Dosage: UNK, BID (50/4 MG)
     Route: 048
  8. METOPROLOL SALT NOT SPECIFIED [Suspect]
     Active Substance: METOPROLOL
     Indication: PRODUCT USED FOR UNKNOWN INDICATION
     Dosage: 95 MG, BID
     Route: 048

REACTIONS (4)
  - Fall [Unknown]
  - Medication error [Unknown]
  - Product prescribing error [Unknown]
  - Dizziness [Unknown]
